FAERS Safety Report 21379464 (Version 1)
Quarter: 2022Q3

REPORT INFORMATION
  Report Type: Report from Study
  Country: US (occurrence: US)
  Receive Date: 20220927
  Receipt Date: 20220927
  Transmission Date: 20221027
  Serious: Yes (Hospitalization)
  Sender: FDA-Public Use
  Company Number: US-CIPLA LTD.-2022US05803

PATIENT

DRUGS (2)
  1. AZACITIDINE [Suspect]
     Active Substance: AZACITIDINE
     Indication: Chronic myeloid leukaemia
     Dosage: 75 MILLIGRAM/SQ. METER, QD ON DAYS 1 TO 5, EACH 28-DAY CYCLE
     Route: 065
  2. QUIZARTINIB [Suspect]
     Active Substance: QUIZARTINIB
     Indication: Chronic myeloid leukaemia
     Dosage: UNK, CYCLE, ON DAYS 1-28
     Route: 065

REACTIONS (2)
  - Drug ineffective [Unknown]
  - Disease progression [Unknown]
